FAERS Safety Report 7354478-4 (Version None)
Quarter: 2011Q1

REPORT INFORMATION
  Report Type: 
  Country: None (occurrence: None)
  Receive Date: 20110316
  Receipt Date: 20110311
  Transmission Date: 20110831
  Serious: Yes (Other)
  Sender: FDA-Public Use
  Company Number: US-BAYER-2011-022565

PATIENT
  Sex: Female

DRUGS (1)
  1. YAZ [Suspect]
     Dosage: UNK
     Dates: start: 20080501, end: 20090313

REACTIONS (4)
  - EMOTIONAL DISTRESS [None]
  - CEREBROVASCULAR ACCIDENT [None]
  - INJURY [None]
  - PAIN [None]
